FAERS Safety Report 25836028 (Version 1)
Quarter: 2025Q3

REPORT INFORMATION
  Report Type: Spontaneous
  Country: EU (occurrence: EU)
  Receive Date: 20250923
  Receipt Date: 20250923
  Transmission Date: 20251021
  Serious: Yes (Death, Life-Threatening, Other)
  Sender: AUROBINDO
  Company Number: EU-EMA-DD-20250909-7482643-113807

PATIENT
  Age: 76 Year
  Sex: Male

DRUGS (5)
  1. CARBOPLATIN [Suspect]
     Active Substance: CARBOPLATIN
     Indication: Squamous cell carcinoma of lung
     Route: 065
     Dates: start: 202211
  2. PACLITAXEL [Suspect]
     Active Substance: PACLITAXEL
     Indication: Squamous cell carcinoma of lung
     Route: 065
     Dates: start: 202211
  3. PEMBROLIZUMAB [Suspect]
     Active Substance: PEMBROLIZUMAB
     Indication: Squamous cell carcinoma of lung
     Route: 065
     Dates: start: 202211, end: 202404
  4. METHYLPREDNISOLONE [Concomitant]
     Active Substance: METHYLPREDNISOLONE
     Indication: Squamous cell carcinoma of lung
     Route: 065
  5. FUROSEMIDE [Concomitant]
     Active Substance: FUROSEMIDE
     Indication: Squamous cell carcinoma of lung
     Route: 065

REACTIONS (2)
  - Idiopathic intracranial hypertension [Fatal]
  - Acute promyelocytic leukaemia [Unknown]

NARRATIVE: CASE EVENT DATE: 20240101
